FAERS Safety Report 19497534 (Version 1)
Quarter: 2021Q3

REPORT INFORMATION
  Report Type: Spontaneous
  Country: US (occurrence: US)
  Receive Date: 20210706
  Receipt Date: 20210706
  Transmission Date: 20211014
  Serious: Yes (Other)
  Sender: FDA-Public Use
  Company Number: US-BAUSCH-BL-2021-022292

PATIENT
  Sex: Male

DRUGS (2)
  1. MESALAMINE. [Suspect]
     Active Substance: MESALAMINE
     Indication: COLITIS ULCERATIVE
     Route: 065
  2. APRISO [Suspect]
     Active Substance: MESALAMINE
     Indication: COLITIS ULCERATIVE
     Dosage: USED FOR MANY YEARS
     Route: 065

REACTIONS (5)
  - Colitis ulcerative [Unknown]
  - Insurance issue [Unknown]
  - Product substitution issue [Unknown]
  - Inability to afford medication [Unknown]
  - Product dose omission issue [Unknown]
